FAERS Safety Report 8610979-X (Version None)
Quarter: 2012Q3

REPORT INFORMATION
  Report Type: 
  Country: None (occurrence: None)
  Receive Date: 20120420
  Receipt Date: 20110606
  Transmission Date: 20120928
  Serious: Yes (Other)
  Sender: FDA-Public Use
  Company Number: WAES 1106USA00698

PATIENT
  Age: 53 Year
  Sex: Female

DRUGS (1)
  1. SINGULAIR [Suspect]
     Indication: HYPERSENSITIVITY
     Dosage: 5 MG/DAILY/PO
     Route: 048
     Dates: start: 20100101

REACTIONS (4)
  - CONVULSION [None]
  - TREMOR [None]
  - ABNORMAL BEHAVIOUR [None]
  - HALLUCINATION [None]
